FAERS Safety Report 11200575 (Version 1)
Quarter: 2015Q2

REPORT INFORMATION
  Report Type: Report from Study
  Country: GB (occurrence: GB)
  Receive Date: 20150618
  Receipt Date: 20150618
  Transmission Date: 20150821
  Serious: Yes (Hospitalization)
  Sender: FDA-Public Use
  Company Number: GB-EISAI MEDICAL RESEARCH-EC-2014-001424

PATIENT
  Age: 64 Year
  Sex: Male
  Weight: 75.7 kg

DRUGS (8)
  1. ERIBULIN [Suspect]
     Active Substance: ERIBULIN
     Indication: OESOPHAGEAL ADENOCARCINOMA
     Route: 041
     Dates: start: 20141021, end: 20150407
  2. PREGABALIN. [Concomitant]
     Active Substance: PREGABALIN
  3. SENNA [Concomitant]
     Active Substance: SENNA LEAF\SENNOSIDES\SENNOSIDES A AND B
  4. ASPIRIN. [Concomitant]
     Active Substance: ASPIRIN
  5. OMEPRAZOLE. [Concomitant]
     Active Substance: OMEPRAZOLE
  6. PARACETAMOL [Concomitant]
     Active Substance: ACETAMINOPHEN
  7. HALOPERIDOL. [Concomitant]
     Active Substance: HALOPERIDOL
  8. SIMVASTATIN. [Concomitant]
     Active Substance: SIMVASTATIN

REACTIONS (2)
  - Pyrexia [Recovered/Resolved]
  - Device occlusion [Recovered/Resolved]

NARRATIVE: CASE EVENT DATE: 20141104
